FAERS Safety Report 5514277-2 (Version None)
Quarter: 2007Q4

REPORT INFORMATION
  Report Type: 
  Country: None (occurrence: None)
  Receive Date: 20071113
  Receipt Date: 20071105
  Transmission Date: 20080405
  Serious: Yes (Hospitalization)
  Sender: FDA-Public Use
  Company Number: ID-JNJFOC-20071101833

PATIENT

DRUGS (2)
  1. RISPERDAL [Suspect]
     Indication: SCHIZOPHRENIA
  2. ZYPREXA [Concomitant]

REACTIONS (2)
  - SEROTONIN SYNDROME [None]
  - SHOCK [None]
